FAERS Safety Report 5997006-8 (Version None)
Quarter: 2008Q4

REPORT INFORMATION
  Report Type: 
  Country: None (occurrence: None)
  Receive Date: 20081212
  Receipt Date: 20081031
  Transmission Date: 20090506
  Serious: No
  Sender: FDA-Public Use
  Company Number: US-ABBOTT-08P-163-0485035-00

PATIENT
  Sex: Male
  Weight: 63.56 kg

DRUGS (6)
  1. HUMIRA [Suspect]
     Indication: CROHN'S DISEASE
     Route: 058
     Dates: start: 20080601
  2. PREDNISONE TAB [Suspect]
     Indication: CROHN'S DISEASE
     Route: 048
  3. PREDNISONE TAB [Suspect]
     Route: 048
  4. PREDNISONE TAB [Suspect]
     Route: 048
  5. LOMOTIL [Suspect]
     Indication: CROHN'S DISEASE
     Route: 048
  6. LOMOTIL [Suspect]
     Route: 048

REACTIONS (8)
  - ARTHRALGIA [None]
  - JOINT STIFFNESS [None]
  - JOINT SWELLING [None]
  - MUSCULOSKELETAL PAIN [None]
  - MYALGIA [None]
  - OEDEMA PERIPHERAL [None]
  - RASH [None]
  - VITAMIN D DECREASED [None]
